FAERS Safety Report 6628889-6 (Version None)
Quarter: 2010Q1

REPORT INFORMATION
  Report Type: 
  Country: None (occurrence: None)
  Receive Date: 20100311
  Receipt Date: 20100304
  Transmission Date: 20100710
  Serious: Yes (Hospitalization)
  Sender: FDA-Public Use
  Company Number: AU-MERCK-0909USA03674

PATIENT
  Age: 79 Year
  Sex: Female

DRUGS (5)
  1. FOSAMAX PLUS D [Suspect]
     Indication: BONE DENSITY DECREASED
     Route: 048
  2. FOSAMAX PLUS D [Suspect]
     Indication: OSTEOPOROSIS
     Route: 048
  3. MICARDIS [Concomitant]
     Route: 065
  4. THYROXIN [Concomitant]
     Route: 065
  5. OMEGA-3 MARINE TRIGLYCERIDES [Concomitant]
     Route: 065

REACTIONS (5)
  - DYSPHAGIA [None]
  - DYSPNOEA [None]
  - MASTICATION DISORDER [None]
  - OESOPHAGEAL DISORDER [None]
  - TRISMUS [None]
